FAERS Safety Report 5232406-5 (Version None)
Quarter: 2007Q1

REPORT INFORMATION
  Report Type: 
  Country: None (occurrence: None)
  Receive Date: 20070205
  Receipt Date: 20070118
  Transmission Date: 20070707
  Serious: Yes (Other)
  Sender: FDA-Public Use
  Company Number: 8021307

PATIENT
  Age: 7 Year
  Sex: Male
  Weight: 23.3 kg

DRUGS (1)
  1. EQUASYM [Suspect]
     Indication: ATTENTION DEFICIT/HYPERACTIVITY DISORDER
     Dosage: 20 MG 1/D PO
     Route: 048
     Dates: start: 20061114, end: 20061122

REACTIONS (1)
  - DRUG INEFFECTIVE [None]
